FAERS Safety Report 4488459-5 (Version None)
Quarter: 2004Q4

REPORT INFORMATION
  Report Type: 
  Country: None (occurrence: None)
  Receive Date: 20041026
  Receipt Date: 20041012
  Transmission Date: 20050328
  Serious: Yes (Hospitalization)
  Sender: FDA-Public Use
  Company Number: USA041080825

PATIENT
  Age: 58 Year
  Sex: Male

DRUGS (3)
  1. HUMULIN N [Suspect]
     Indication: DIABETES MELLITUS
     Dates: start: 20030601, end: 20030901
  2. HUMULIN R [Suspect]
     Indication: DIABETES MELLITUS
     Dates: start: 20030601, end: 20030901
  3. HUMALOG [Suspect]
     Indication: DIABETES MELLITUS
     Dates: start: 20030901

REACTIONS (5)
  - DIABETES MELLITUS INADEQUATE CONTROL [None]
  - PANCREATIC ABSCESS [None]
  - PANCREATIC NECROSIS [None]
  - PANCREATITIS [None]
  - PHARMACEUTICAL PRODUCT COMPLAINT [None]
